FAERS Safety Report 10966207 (Version 1)
Quarter: 2015Q1

REPORT INFORMATION
  Report Type: Spontaneous
  Country: US (occurrence: US)
  Receive Date: 20150330
  Receipt Date: 20150330
  Transmission Date: 20150721
  Serious: No
  Sender: FDA-Public Use
  Company Number: US-MYLANLABS-2014S1009003

PATIENT
  Age: 53 Year
  Sex: Female

DRUGS (2)
  1. FENTANYL TRANSDERMAL SYSTEM [Suspect]
     Active Substance: FENTANYL
     Indication: PAIN
     Dosage: 50 ?G,QH
     Route: 062
     Dates: start: 201402
  2. OXYCODONE [Concomitant]
     Active Substance: OXYCODONE
     Indication: PAIN
     Dosage: 10 MG,TID
     Route: 048
     Dates: end: 201404

REACTIONS (2)
  - Wrong technique in drug usage process [Not Recovered/Not Resolved]
  - False negative investigation result [Not Recovered/Not Resolved]

NARRATIVE: CASE EVENT DATE: 201404
